FAERS Safety Report 5170031-5 (Version None)
Quarter: 2006Q4

REPORT INFORMATION
  Report Type: 
  Country: None (occurrence: None)
  Receive Date: 20061212
  Receipt Date: 20061201
  Transmission Date: 20070319
  Serious: Yes (Death, Hospitalization)
  Sender: FDA-Public Use
  Company Number: AU-ELI_LILLY_AND_COMPANY-AU200612000817

PATIENT
  Sex: Male

DRUGS (2)
  1. GEMZAR [Suspect]
     Indication: METASTATIC NEOPLASM
     Dosage: 1000 MG/M2, OTHER
     Route: 042
  2. CARBOPLATIN [Concomitant]
     Indication: METASTATIC NEOPLASM
     Dosage: 5 UNK, OTHER
     Route: 042

REACTIONS (4)
  - FEBRILE NEUTROPENIA [None]
  - NEUTROPENIC SEPSIS [None]
  - RENAL FAILURE [None]
  - RESPIRATORY FAILURE [None]
